FAERS Safety Report 5038087-8 (Version None)
Quarter: 2006Q2

REPORT INFORMATION
  Report Type: 
  Country: None (occurrence: None)
  Receive Date: 20060602
  Receipt Date: 20060403
  Transmission Date: 20061013
  Serious: Yes (Other)
  Sender: FDA-Public Use
  Company Number: 2006-04-0042

PATIENT
  Sex: Female

DRUGS (1)
  1. NITRO-DUR [Suspect]
     Indication: ANGINA UNSTABLE
     Dosage: TRANSDERMAL
     Route: 062

REACTIONS (3)
  - ANGINA PECTORIS [None]
  - APPLICATION SITE IRRITATION [None]
  - ERYTHEMA [None]
